FAERS Safety Report 8982786 (Version 1)
Quarter: 2012Q4

REPORT INFORMATION
  Report Type: 
  Country: AU (occurrence: AU)
  Receive Date: 20121221
  Receipt Date: 20121221
  Transmission Date: 20130627
  Serious: Yes (Hospitalization)
  Sender: FDA-Public Use
  Company Number: AU-VERTEX PHARMACEUTICALS INC.-2012-026540

PATIENT

DRUGS (3)
  1. TELAPREVIR [Suspect]
     Indication: PRODUCT USED FOR UNKNOWN INDICATION
     Dosage: UNK, tid
  2. PEG INTERFERON [Concomitant]
     Dosage: Dosage Form: Unknown
     Route: 065
  3. RIBAVIRIN [Concomitant]
     Dosage: Dosage Form: Unknown
     Route: 065

REACTIONS (1)
  - Rash [Not Recovered/Not Resolved]
